FAERS Safety Report 4663473-5 (Version None)
Quarter: 2005Q2

REPORT INFORMATION
  Report Type: 
  Country: None (occurrence: None)
  Receive Date: 20050517
  Receipt Date: 20050504
  Transmission Date: 20051028
  Serious: Yes (Hospitalization, Other)
  Sender: FDA-Public Use
  Company Number: GB-JNJFOC-20050500991

PATIENT
  Sex: Male
  Weight: 73 kg

DRUGS (8)
  1. REMICADE [Suspect]
     Route: 042
  2. AZATHIOPRINE [Concomitant]
     Route: 065
  3. CO-PRAXAMOL [Concomitant]
     Route: 065
  4. CO-PRAXAMOL [Concomitant]
     Route: 065
  5. B12 [Concomitant]
     Route: 065
  6. TRAMADOL [Concomitant]
     Route: 065
  7. ETORICOXIB [Concomitant]
     Route: 065
  8. OMEPRAZOLE [Concomitant]
     Route: 065

REACTIONS (1)
  - ACCELERATED HYPERTENSION [None]
